FAERS Safety Report 7787459-7 (Version None)
Quarter: 2011Q3

REPORT INFORMATION
  Report Type: 
  Country: None (occurrence: None)
  Receive Date: 20110929
  Receipt Date: 20110309
  Transmission Date: 20111222
  Serious: Yes (Hospitalization)
  Sender: FDA-Public Use
  Company Number: US-BAYER-201041639NA

PATIENT
  Age: 43 Year
  Sex: Female
  Weight: 48 kg

DRUGS (4)
  1. TAPAZOLE [Concomitant]
     Indication: BASEDOW'S DISEASE
     Dosage: 2.5 MG, QD
     Route: 048
     Dates: start: 20020101
  2. TRAZODONE HYDROCHLORIDE [Concomitant]
     Dosage: 10 MG, QD
  3. YAZ [Suspect]
     Indication: MENSTRUAL DISORDER
     Dosage: UNK UNK, QD
     Route: 048
     Dates: start: 20080401, end: 20081101
  4. YAZ [Suspect]
     Indication: HORMONE THERAPY

REACTIONS (5)
  - DEEP VEIN THROMBOSIS [None]
  - PULMONARY EMBOLISM [None]
  - PAIN IN EXTREMITY [None]
  - CARDIAC DISORDER [None]
  - PULMONARY INFARCTION [None]
